FAERS Safety Report 7274888-3 (Version None)
Quarter: 2011Q1

REPORT INFORMATION
  Report Type: 
  Country: None (occurrence: None)
  Receive Date: 20110204
  Receipt Date: 20110131
  Transmission Date: 20110831
  Serious: Yes (Other)
  Sender: FDA-Public Use
  Company Number: GB-JNJFOC-20101207992

PATIENT
  Age: 80 Year
  Sex: Male

DRUGS (4)
  1. MICONAZOLE [Suspect]
     Indication: ILL-DEFINED DISORDER
     Route: 061
  2. MICONAZOLE [Suspect]
     Route: 061
  3. WARFARIN SODIUM [Interacting]
     Indication: ILL-DEFINED DISORDER
     Route: 065
  4. UNKNOWN MULTIPLE MEDICATION [Concomitant]

REACTIONS (2)
  - DRUG INTERACTION [None]
  - CEREBROVASCULAR ACCIDENT [None]
